FAERS Safety Report 21486769 (Version 1)
Quarter: 2022Q4

REPORT INFORMATION
  Report Type: Report from Study
  Country: CH (occurrence: None)
  Receive Date: 20221020
  Receipt Date: 20221020
  Transmission Date: 20230113
  Serious: Yes (Death, Hospitalization, Other)
  Sender: FDA-Public Use
  Company Number: 2022A193338

PATIENT
  Age: 27772 Day
  Sex: Male
  Weight: 70 kg

DRUGS (7)
  1. DURVALUMAB [Suspect]
     Active Substance: DURVALUMAB
     Indication: Non-small cell lung cancer stage III
     Route: 042
     Dates: start: 20190618, end: 20190729
  2. SILODOSIN [Concomitant]
     Active Substance: SILODOSIN
     Indication: Benign prostatic hyperplasia
     Route: 048
     Dates: end: 202104
  3. OMEPRAZOLE [Concomitant]
     Active Substance: OMEPRAZOLE
     Indication: Antacid therapy
     Route: 048
     Dates: end: 202001
  4. LINAGLIPTIN [Concomitant]
     Active Substance: LINAGLIPTIN
     Indication: Diabetes mellitus
     Route: 048
     Dates: end: 202004
  5. CALCIMAGON D3 FORTE [Concomitant]
     Indication: Hypovitaminosis
     Route: 048
     Dates: end: 202104
  6. MEFENAMIC ACID [Concomitant]
     Active Substance: MEFENAMIC ACID
     Indication: Neck pain
     Route: 048
     Dates: start: 201910, end: 20191111
  7. MICARDIS [Concomitant]
     Active Substance: TELMISARTAN
     Indication: Hypertension

REACTIONS (13)
  - Death [Fatal]
  - Gastrointestinal toxicity [Recovered/Resolved]
  - Renal failure [Recovered/Resolved]
  - Hypotension [Recovered/Resolved]
  - Hypoperfusion [Recovered/Resolved]
  - Autoimmune colitis [Recovered/Resolved]
  - Tubulointerstitial nephritis [Unknown]
  - Diarrhoea [Recovered/Resolved]
  - Decreased appetite [Unknown]
  - Weight decreased [Unknown]
  - Hypovolaemia [Unknown]
  - Malignant neoplasm progression [Unknown]
  - Pulmonary embolism [Unknown]

NARRATIVE: CASE EVENT DATE: 20190618
